FAERS Safety Report 16439526 (Version 1)
Quarter: 2019Q2

REPORT INFORMATION
  Report Type: Spontaneous
  Country: US (occurrence: US)
  Receive Date: 20190617
  Receipt Date: 20190617
  Transmission Date: 20190711
  Serious: No
  Sender: FDA-Public Use
  Company Number: US-PFIZER INC-2019255491

PATIENT
  Age: 49 Year
  Sex: Female
  Weight: 95.24 kg

DRUGS (1)
  1. ZITHROMAX [Suspect]
     Active Substance: AZITHROMYCIN DIHYDRATE
     Dosage: UNK

REACTIONS (5)
  - Drug hypersensitivity [Unknown]
  - Vomiting [Unknown]
  - Gastrointestinal disorder [Unknown]
  - Nausea [Unknown]
  - Diarrhoea [Unknown]
